FAERS Safety Report 8809883 (Version 1)
Quarter: 2012Q4

REPORT INFORMATION
  Report Type: Report from Study
  Country: US (occurrence: US)
  Receive Date: 20120926
  Receipt Date: 20120926
  Transmission Date: 20130627
  Serious: Yes (Other)
  Sender: FDA-Public Use
  Company Number: US-ABBOTT-12P-163-0981668-00

PATIENT
  Age: 64 Year
  Sex: Female

DRUGS (18)
  1. HUMIRA [Suspect]
     Indication: CROHN^S DISEASE
  2. TOPAMAX [Concomitant]
     Indication: MUSCLE SPASMS
  3. MIGRANIL [Concomitant]
     Indication: MIGRAINE
  4. PROMETHAZINE [Concomitant]
     Indication: NAUSEA
  5. FOLIC ACID [Concomitant]
     Indication: PRODUCT USED FOR UNKNOWN INDICATION
  6. NEXIUM [Concomitant]
     Indication: ULCER
  7. NEXIUM [Concomitant]
     Indication: PROPHYLAXIS
  8. BONIVA [Concomitant]
     Indication: OSTEOPOROSIS
     Dosage: Monthly
  9. LYRICA [Concomitant]
     Indication: FIBROMYALGIA
  10. MOBIC [Concomitant]
     Indication: BONE PAIN
  11. LIDODERM [Concomitant]
     Indication: BACK PAIN
  12. ALPRAZOLAM [Concomitant]
     Indication: INSOMNIA
     Dosage: At bedtime
  13. SOMA COMPOUND [Concomitant]
     Indication: MUSCLE RELAXANT THERAPY
     Dosage: 1-3 times a day
  14. XYZAL [Concomitant]
     Indication: PRURITUS
  15. HYDROCODONE [Concomitant]
     Indication: HEADACHE
  16. HYDROCODONE [Concomitant]
     Indication: BACK PAIN
  17. HYDROCODONE [Concomitant]
     Indication: ABDOMINAL PAIN
  18. AMITRIPTYLINE [Concomitant]
     Indication: INSOMNIA

REACTIONS (4)
  - Upper limb fracture [Recovering/Resolving]
  - Gait disturbance [Unknown]
  - Fall [Unknown]
  - Impaired healing [Recovering/Resolving]
